FAERS Safety Report 25082103 (Version 2)
Quarter: 2025Q2

REPORT INFORMATION
  Report Type: Report from Study
  Country: US (occurrence: US)
  Receive Date: 20250317
  Receipt Date: 20250401
  Transmission Date: 20250717
  Serious: Yes (Hospitalization, Other)
  Sender: UCB
  Company Number: US-UCBSA-2025014978

PATIENT
  Age: 79 Year
  Sex: Female

DRUGS (1)
  1. ROTIGOTINE [Suspect]
     Active Substance: ROTIGOTINE
     Indication: Parkinson^s disease
     Dosage: 6 MILLIGRAM, ONCE DAILY (QD)
     Route: 062

REACTIONS (4)
  - Fall [Unknown]
  - Hip arthroplasty [Unknown]
  - Parkinson^s disease [Unknown]
  - Application site rash [Unknown]

NARRATIVE: CASE EVENT DATE: 20241118
